FAERS Safety Report 14519213 (Version 1)
Quarter: 2018Q1

REPORT INFORMATION
  Report Type: Spontaneous
  Country: US (occurrence: US)
  Receive Date: 20180212
  Receipt Date: 20180212
  Transmission Date: 20180509
  Serious: Yes (Other)
  Sender: FDA-Public Use
  Company Number: US-PFIZER INC-2018057040

PATIENT
  Age: 65 Year
  Sex: Female
  Weight: 90.72 kg

DRUGS (2)
  1. CELEBREX [Suspect]
     Active Substance: CELECOXIB
     Indication: FIBROMYALGIA
     Dosage: 200 MG, DAILY
     Route: 048
     Dates: start: 201801, end: 201801
  2. LYRICA [Suspect]
     Active Substance: PREGABALIN
     Indication: FIBROMYALGIA
     Dosage: 150MG, TWICE A DAY
     Route: 048
     Dates: start: 201801, end: 201801

REACTIONS (6)
  - Pulmonary oedema [Unknown]
  - Bronchitis viral [Unknown]
  - Respiratory tract oedema [Unknown]
  - Swelling [Not Recovered/Not Resolved]
  - Dyspnoea [Recovered/Resolved]
  - Intentional product misuse [Unknown]

NARRATIVE: CASE EVENT DATE: 201801
